FAERS Safety Report 24432395 (Version 1)
Quarter: 2024Q4

REPORT INFORMATION
  Report Type: Spontaneous
  Country: US (occurrence: US)
  Receive Date: 20241014
  Receipt Date: 20241014
  Transmission Date: 20250114
  Serious: Yes (Other)
  Sender: ABBVIE
  Company Number: US-ABBVIE-5956720

PATIENT
  Sex: Female
  Weight: 70 kg

DRUGS (4)
  1. DEPAKOTE [Suspect]
     Active Substance: DIVALPROEX SODIUM
     Indication: Seizure
     Route: 048
     Dates: start: 202405, end: 20240729
  2. APTIOM [Suspect]
     Active Substance: ESLICARBAZEPINE ACETATE
     Indication: Seizure
     Route: 048
     Dates: start: 202405
  3. APTIOM [Suspect]
     Active Substance: ESLICARBAZEPINE ACETATE
     Indication: Seizure
     Route: 048
     Dates: start: 202407
  4. ZYRTEC [Concomitant]
     Active Substance: CETIRIZINE HYDROCHLORIDE
     Indication: Multiple allergies

REACTIONS (14)
  - Seizure [Unknown]
  - Undifferentiated connective tissue disease [Unknown]
  - Blood test abnormal [Unknown]
  - Cardiac disorder [Unknown]
  - Anxiety [Unknown]
  - Hypertension [Unknown]
  - Coordination abnormal [Unknown]
  - Depression [Unknown]
  - Somnolence [Unknown]
  - Insomnia [Unknown]
  - Fall [Unknown]
  - Dizziness [Unknown]
  - Fatigue [Unknown]
  - Immunodeficiency [Unknown]

NARRATIVE: CASE EVENT DATE: 20240101
